FAERS Safety Report 21094346 (Version 1)
Quarter: 2022Q3

REPORT INFORMATION
  Report Type: Spontaneous
  Country: US (occurrence: None)
  Receive Date: 20220716
  Receipt Date: 20220716
  Transmission Date: 20221026
  Serious: Yes (Hospitalization)
  Sender: FDA-Public Use
  Company Number: None

PATIENT
  Age: 56 Year
  Sex: Male
  Weight: 104.6 kg

DRUGS (4)
  1. FLUOROURACIL [Suspect]
     Active Substance: FLUOROURACIL
     Dates: end: 20220401
  2. CAMPTOSAR [Suspect]
     Active Substance: IRINOTECAN HYDROCHLORIDE
     Dates: end: 20220330
  3. LEUCOVORIN CALCIUM [Suspect]
     Active Substance: LEUCOVORIN CALCIUM
     Dates: end: 20220330
  4. ELOXATIN [Suspect]
     Active Substance: OXALIPLATIN
     Dates: end: 20220330

REACTIONS (7)
  - Impaired gastric emptying [None]
  - Asthenia [None]
  - Flat affect [None]
  - Loss of personal independence in daily activities [None]
  - Facial paralysis [None]
  - Wound infection [None]
  - Hypophagia [None]

NARRATIVE: CASE EVENT DATE: 20220703
